FAERS Safety Report 11423994 (Version 2)
Quarter: 2015Q3

REPORT INFORMATION
  Report Type: Spontaneous
  Country: RU (occurrence: RU)
  Receive Date: 20150827
  Receipt Date: 20150904
  Transmission Date: 20151125
  Serious: Yes (Other)
  Sender: FDA-Public Use
  Company Number: RU-BAYER-2015-393771

PATIENT
  Age: 29 Year
  Sex: Female

DRUGS (1)
  1. QLAIRA [Suspect]
     Active Substance: DIENOGEST\ESTRADIOL VALERATE
     Indication: HORMONE THERAPY
     Route: 048

REACTIONS (4)
  - Abortion missed [None]
  - Pregnancy on oral contraceptive [None]
  - Drug ineffective [None]
  - Off label use [None]
